FAERS Safety Report 5028372-8 (Version None)
Quarter: 2006Q2

REPORT INFORMATION
  Report Type: 
  Country: None (occurrence: None)
  Receive Date: 20060613
  Receipt Date: 20060531
  Transmission Date: 20061013
  Serious: Yes (Hospitalization, Other)
  Sender: FDA-Public Use
  Company Number: 2006071305

PATIENT
  Age: 57 Year
  Sex: Female
  Weight: 47.6277 kg

DRUGS (3)
  1. SUTENT [Suspect]
     Indication: GASTROINTESTINAL STROMAL TUMOUR
     Dosage: 50 MG (50 MG, 1 IN 1 D)
     Dates: start: 20060501, end: 20060501
  2. DRUG, UNSPECIFIED (DRUG, UNSPECIFIED) [Concomitant]
  3. PROZAC [Concomitant]

REACTIONS (5)
  - ABNORMAL BEHAVIOUR [None]
  - CEREBROVASCULAR ACCIDENT [None]
  - CONFUSIONAL STATE [None]
  - LEUKOENCEPHALOPATHY [None]
  - VOMITING [None]
